FAERS Safety Report 6873854-7 (Version None)
Quarter: 2010Q3

REPORT INFORMATION
  Report Type: 
  Country: None (occurrence: None)
  Receive Date: 20100723
  Receipt Date: 20090424
  Transmission Date: 20110219
  Serious: No
  Sender: FDA-Public Use
  Company Number: US-PFIZER INC-2009172471

PATIENT
  Sex: Female
  Weight: 90.703 kg

DRUGS (28)
  1. CHANTIX [Suspect]
     Indication: SMOKING CESSATION THERAPY
     Dosage: 1 MG, 2X/DAY
     Route: 048
     Dates: start: 20090206, end: 20090218
  2. RISPERDAL [Concomitant]
     Dosage: 4 MG, UNK
  3. ACETAMINOPHEN [Concomitant]
     Indication: PAIN
     Dosage: 325 MG, UNK
  4. ACETYLSALICYLIC ACID [Concomitant]
     Dosage: 81 MG, UNK
     Route: 048
  5. AMLODIPINE BESILATE / RAMIPRIL [Concomitant]
     Indication: HYPERTENSION
     Dosage: UNK
  6. VITACAL [Concomitant]
     Dosage: CALCIUM CARBONATE 600MG WITH VITAMIN D 400 UNITS
     Route: 048
  7. DIAZEPAM [Concomitant]
     Dosage: 5 MG, UNK
     Route: 048
  8. DIAZEPAM [Concomitant]
     Route: 048
  9. GABAPENTIN [Concomitant]
     Dosage: 400 MG, UNK
     Route: 048
  10. GABAPENTIN [Concomitant]
     Route: 048
  11. PRINZIDE [Concomitant]
     Dosage: UNK
  12. IBUPROFEN [Concomitant]
     Dosage: UNK
  13. FISH OIL [Concomitant]
     Dosage: UNK
  14. OMEPRAZOLE [Concomitant]
     Indication: GASTRIC DISORDER
     Dosage: 20 MG, AS NEEDED
     Route: 048
  15. OMEPRAZOLE [Concomitant]
     Route: 048
  16. ZOLOFT [Concomitant]
     Indication: DEPRESSION
     Dosage: 100 MG, UNK
  17. TRAMADOL [Concomitant]
     Indication: HEADACHE
     Dosage: 50 MG, UNK
     Route: 048
  18. ARTANE [Concomitant]
  19. MULTI-VITAMINS [Concomitant]
     Dosage: UNK
  20. ABILIFY [Concomitant]
     Dosage: UNK
     Route: 048
  21. AMLODIPINE [Concomitant]
     Dosage: UNK
     Route: 048
  22. CODEINE [Concomitant]
     Dosage: UNK
     Route: 048
  23. HYDROCHLOROTHIAZIDE [Concomitant]
     Dosage: UNK
     Route: 048
  24. LISINOPRIL [Concomitant]
     Dosage: UNK
     Route: 048
  25. MULTI-VITAMINS [Concomitant]
     Dosage: UNK
     Route: 048
  26. MINERALS NOS [Concomitant]
     Dosage: UNK
     Route: 048
  27. SERTRALINE HYDROCHLORIDE [Concomitant]
     Dosage: UNK
     Route: 048
  28. TRIHEXYPHENIDYL [Concomitant]
     Dosage: UNK
     Route: 048

REACTIONS (4)
  - HEADACHE [None]
  - MUSCLE TWITCHING [None]
  - NAUSEA [None]
  - ORAL DISORDER [None]
